FAERS Safety Report 9311965 (Version 1)
Quarter: 2013Q1

REPORT INFORMATION
  Report Type: Spontaneous
  Country: US (occurrence: None)
  Receive Date: 20121221
  Receipt Date: 20121221
  Transmission Date: 20140127
  Serious: Yes (Other)
  Sender: FDA-Public Use
  Company Number: DSA_60241_2012

PATIENT
  Sex: Female

DRUGS (4)
  1. XENAZINE 12.5 MG (NOT SPECIFIED) [Suspect]
     Indication: HUNTINGTON^S DISEASE
     Route: 048
     Dates: start: 2012, end: 2012
  2. AMBIEN [Concomitant]
  3. CELEXA [Concomitant]
  4. PREMARIN [Concomitant]

REACTIONS (8)
  - Abnormal behaviour [None]
  - Gait disturbance [None]
  - Speech disorder [None]
  - Fall [None]
  - Fatigue [None]
  - Poor quality sleep [None]
  - Depression [None]
  - Therapy cessation [None]
